FAERS Safety Report 8391713-8 (Version None)
Quarter: 2012Q2

REPORT INFORMATION
  Report Type: 
  Country: None (occurrence: None)
  Receive Date: 20120529
  Receipt Date: 20120518
  Transmission Date: 20120825
  Serious: Yes (Other)
  Sender: FDA-Public Use
  Company Number: US-ASTRAZENECA-2012SE32560

PATIENT
  Age: 50 Year
  Sex: Male

DRUGS (3)
  1. ARIMIDEX [Suspect]
     Dosage: GENERIC
     Route: 048
  2. ARIMIDEX [Suspect]
     Route: 048
     Dates: start: 20111001
  3. HERCEPTIN [Concomitant]
     Dates: start: 20111020

REACTIONS (2)
  - DISEASE PROGRESSION [None]
  - ADVERSE DRUG REACTION [None]
